FAERS Safety Report 14847029 (Version 1)
Quarter: 2018Q2

REPORT INFORMATION
  Report Type: Spontaneous
  Country: DE (occurrence: DE)
  Receive Date: 20180504
  Receipt Date: 20180504
  Transmission Date: 20180711
  Serious: Yes (Hospitalization)
  Sender: FDA-Public Use
  Company Number: DE-009507513-1804DEU011665

PATIENT
  Age: 85 Year
  Sex: Female

DRUGS (9)
  1. FOLIC ACID. [Concomitant]
     Active Substance: FOLIC ACID
     Dosage: 5 MG, 1-0-0-0
  2. GINKGO [Concomitant]
     Active Substance: GINKGO
     Dosage: 120 MG, 0-0-1-0
  3. CARBIDOPA (+) LEVODOPA [Suspect]
     Active Substance: CARBIDOPA\LEVODOPA
     Dosage: 100/25 MG, 1-0-1-0
  4. MELPERONE [Concomitant]
     Active Substance: MELPERONE
     Dosage: 25 MG, 0-0-0.5-0
  5. CYANOCOBALAMIN. [Concomitant]
     Active Substance: CYANOCOBALAMIN
     Dosage: 1XMONTH
  6. DIPYRONE [Concomitant]
     Active Substance: DIPYRONE
     Dosage: 500 MG, IF NECESSARY
  7. RAMIPRIL. [Concomitant]
     Active Substance: RAMIPRIL
     Dosage: 5 MG, 0.5-0-0-0
  8. METOPROLOL. [Concomitant]
     Active Substance: METOPROLOL
     Dosage: 23.75 MG
  9. ACETAMINOPHEN. [Concomitant]
     Active Substance: ACETAMINOPHEN
     Dosage: 1000 MG, IF NECESSARY, SUPPOSITORIA

REACTIONS (1)
  - Diet refusal [Unknown]

NARRATIVE: CASE EVENT DATE: 20160402
